FAERS Safety Report 9699548 (Version 1)
Quarter: 2013Q4

REPORT INFORMATION
  Report Type: Spontaneous
  Country: GB (occurrence: GB)
  Receive Date: 20131120
  Receipt Date: 20131120
  Transmission Date: 20140711
  Serious: Yes (Life-Threatening, Hospitalization)
  Sender: FDA-Public Use
  Company Number: GB-MYLANLABS-2013S1025449

PATIENT
  Age: 20 Year
  Sex: Male

DRUGS (2)
  1. CARBAMAZEPINE [Suspect]
     Indication: INTENTIONAL OVERDOSE
     Dosage: UNKNOWN QUANTITY
     Route: 048
  2. LEVETIRACETAM [Suspect]
     Indication: INTENTIONAL OVERDOSE
     Dosage: UNKNOWN QUANTITY
     Route: 048

REACTIONS (10)
  - Intentional overdose [Recovered/Resolved]
  - Dysarthria [Recovered/Resolved]
  - Confusional state [Recovered/Resolved]
  - Agitation [Recovered/Resolved]
  - Hypotension [Recovered/Resolved]
  - Bundle branch block right [Recovered/Resolved]
  - Grand mal convulsion [Recovered/Resolved]
  - Ventricular fibrillation [Recovered/Resolved]
  - Cardiac arrest [Recovered/Resolved]
  - Coma scale abnormal [Recovered/Resolved]
